FAERS Safety Report 26005579 (Version 1)
Quarter: 2025Q4

REPORT INFORMATION
  Report Type: Spontaneous
  Country: CA (occurrence: CA)
  Receive Date: 20251106
  Receipt Date: 20251106
  Transmission Date: 20260117
  Serious: Yes (Other)
  Sender: AUROBINDO
  Company Number: CA-AUROBINDO-AUR-APL-2025-056191

PATIENT
  Age: 83 Year
  Sex: Male
  Weight: 81 kg

DRUGS (2)
  1. PREGABALIN [Suspect]
     Active Substance: PREGABALIN
     Indication: Product used for unknown indication
     Dosage: 1 DOSAGE FORM, EVERY 5 DAYS
     Route: 065
  2. REMICADE [Suspect]
     Active Substance: INFLIXIMAB
     Indication: Crohn^s disease
     Dosage: 500 MILLIGRAM, ONCE EVERY 8 WEEKS
     Route: 041

REACTIONS (3)
  - Malaise [Recovered/Resolved]
  - Ophthalmic herpes zoster [Recovered/Resolved]
  - Hypersomnia [Recovered/Resolved]
